FAERS Safety Report 18114392 (Version 1)
Quarter: 2020Q3

REPORT INFORMATION
  Report Type: Report from Study
  Country: JP (occurrence: JP)
  Receive Date: 20200805
  Receipt Date: 20200805
  Transmission Date: 20201103
  Serious: Yes (Death)
  Sender: FDA-Public Use
  Company Number: JP-VIFOR (INTERNATIONAL) INC.-VIT-2017-10383

PATIENT
  Age: 63 Year
  Sex: Male
  Weight: 55.2 kg

DRUGS (26)
  1. PERYCIT [Concomitant]
     Active Substance: NICERITROL
  2. RESTAMIN KOWA [Concomitant]
     Route: 050
  3. REGPARA [Concomitant]
     Active Substance: CINACALCET HYDROCHLORIDE
     Route: 048
     Dates: end: 20170501
  4. RENAGEL [Concomitant]
     Active Substance: SEVELAMER HYDROCHLORIDE
     Route: 048
  5. NESP [Concomitant]
     Active Substance: DARBEPOETIN ALFA
     Dates: start: 20160709, end: 20160917
  6. NESP [Concomitant]
     Active Substance: DARBEPOETIN ALFA
     Dates: start: 20160924, end: 20161015
  7. AMLODIPINE BESILATE [Concomitant]
     Active Substance: AMLODIPINE BESYLATE
  8. NESP [Concomitant]
     Active Substance: DARBEPOETIN ALFA
     Dates: start: 20170408
  9. SENNOSIDE A+B [Concomitant]
     Active Substance: SENNOSIDES A AND B
  10. VELPHORO [Suspect]
     Active Substance: SUCROFERRIC OXYHYDROXIDE
     Indication: CHRONIC KIDNEY DISEASE
  11. NEUROTROPIN [Concomitant]
     Active Substance: NEUROTROPIN
  12. NESP [Concomitant]
     Active Substance: DARBEPOETIN ALFA
     Dates: start: 20161112, end: 20170107
  13. LOXONIN [Concomitant]
     Active Substance: LOXOPROFEN SODIUM
     Dosage: 14 SHEETS
     Dates: start: 20160714
  14. VELPHORO [Suspect]
     Active Substance: SUCROFERRIC OXYHYDROXIDE
     Indication: HYPERPHOSPHATAEMIA
     Route: 048
     Dates: start: 20160628
  15. TEPRENONE [Concomitant]
     Active Substance: TEPRENONE
  16. MAXACALCITOL [Concomitant]
     Active Substance: MAXACALCITOL
     Dates: start: 20170518
  17. NESP [Concomitant]
     Active Substance: DARBEPOETIN ALFA
     Dates: start: 20170128, end: 20170204
  18. DOMPERIDONE [Concomitant]
     Active Substance: DOMPERIDONE
  19. MAXACALCITOL [Concomitant]
     Active Substance: MAXACALCITOL
     Dates: end: 20170516
  20. NESP [Concomitant]
     Active Substance: DARBEPOETIN ALFA
     Dates: end: 20160702
  21. NESP [Concomitant]
     Active Substance: DARBEPOETIN ALFA
     Dates: start: 20161022, end: 20161105
  22. NESP [Concomitant]
     Active Substance: DARBEPOETIN ALFA
     Dates: start: 20170114, end: 20170121
  23. NESP [Concomitant]
     Active Substance: DARBEPOETIN ALFA
     Dates: start: 20170211, end: 20170401
  24. MOHRUS TAPE L [Concomitant]
     Active Substance: KETOPROFEN
     Dosage: 14 SHEETS
     Route: 050
  25. PARSABIV [Concomitant]
     Active Substance: ETELCALCETIDE HYDROCHLORIDE
     Dates: start: 20170502
  26. YOUPATCH [Concomitant]

REACTIONS (1)
  - Iron deficiency anaemia [Fatal]

NARRATIVE: CASE EVENT DATE: 20170516
